FAERS Safety Report 7787715-2 (Version None)
Quarter: 2011Q3

REPORT INFORMATION
  Report Type: 
  Country: None (occurrence: None)
  Receive Date: 20110929
  Receipt Date: 20110922
  Transmission Date: 20111222
  Serious: Yes (Hospitalization, Disabling, Other)
  Sender: FDA-Public Use
  Company Number: US-MERCK-1106USA02745

PATIENT
  Age: 46 Year
  Sex: Female
  Weight: 94 kg

DRUGS (5)
  1. VITAMINS (UNSPECIFIED) [Concomitant]
     Route: 065
     Dates: start: 19960101
  2. FOSAMAX [Suspect]
     Indication: OSTEOPOROSIS
     Route: 048
     Dates: start: 19980101, end: 20081201
  3. FOSAMAX [Suspect]
     Indication: OSTEOPENIA
     Route: 048
     Dates: start: 19980101, end: 20081201
  4. CLIMARA [Concomitant]
     Indication: HORMONE REPLACEMENT THERAPY
     Route: 065
     Dates: start: 19970101, end: 20080101
  5. METHOTREXATE [Suspect]
     Indication: RHEUMATOID ARTHRITIS
     Route: 065
     Dates: start: 20060101, end: 20110603

REACTIONS (42)
  - FRACTURE DELAYED UNION [None]
  - STRESS [None]
  - MALAISE [None]
  - MAJOR DEPRESSION [None]
  - POOR QUALITY SLEEP [None]
  - PAIN IN EXTREMITY [None]
  - BREAKTHROUGH PAIN [None]
  - RHEUMATOID ARTHRITIS [None]
  - URINARY TRACT INFECTION [None]
  - HEPATIC ENZYME INCREASED [None]
  - GASTROOESOPHAGEAL REFLUX DISEASE [None]
  - STAPHYLOCOCCAL INFECTION [None]
  - COLITIS ULCERATIVE [None]
  - FIBROMYALGIA [None]
  - ANXIETY DISORDER [None]
  - LOWER LIMB FRACTURE [None]
  - HYPOKALAEMIA [None]
  - VITAMIN D DEFICIENCY [None]
  - VITAMIN B COMPLEX DEFICIENCY [None]
  - RAYNAUD'S PHENOMENON [None]
  - MIGRAINE [None]
  - MENOPAUSE [None]
  - INTERVERTEBRAL DISC DEGENERATION [None]
  - PNEUMONIA [None]
  - GAIT DISTURBANCE [None]
  - ARTHRITIS ENTEROPATHIC [None]
  - FALL [None]
  - PAIN [None]
  - JOINT EFFUSION [None]
  - IMPAIRED HEALING [None]
  - MENISCUS LESION [None]
  - PYREXIA [None]
  - CALCIUM DEFICIENCY [None]
  - FOOT FRACTURE [None]
  - BACK PAIN [None]
  - FEMUR FRACTURE [None]
  - SYSTEMIC LUPUS ERYTHEMATOSUS [None]
  - FATIGUE [None]
  - OEDEMA [None]
  - MENTAL IMPAIRMENT [None]
  - ESSENTIAL HYPERTENSION [None]
  - SKELETAL INJURY [None]
